FAERS Safety Report 4885596-8 (Version None)
Quarter: 2006Q1

REPORT INFORMATION
  Report Type: 
  Country: None (occurrence: None)
  Receive Date: 20060119
  Receipt Date: 20051005
  Transmission Date: 20060701
  Serious: Yes (Hospitalization, Other)
  Sender: FDA-Public Use
  Company Number: US-MERCK-0510USA04724

PATIENT
  Age: 78 Year
  Sex: Male
  Weight: 89 kg

DRUGS (3)
  1. VIOXX [Suspect]
     Indication: MONARTHRITIS
     Route: 048
     Dates: start: 20020301, end: 20040901
  2. ASPIRIN [Concomitant]
     Route: 065
  3. LOTREL [Concomitant]
     Route: 065

REACTIONS (9)
  - ARTERIAL OCCLUSIVE DISEASE [None]
  - ARTHROPATHY [None]
  - CARDIAC VALVE DISEASE [None]
  - CARDIOVASCULAR DISORDER [None]
  - CHEST PAIN [None]
  - CORONARY ARTERY DISEASE [None]
  - DYSPNOEA [None]
  - GASTRIC ULCER HAEMORRHAGE [None]
  - MYOCARDIAL INFARCTION [None]
